FAERS Safety Report 10509173 (Version 1)
Quarter: 2014Q3

REPORT INFORMATION
  Report Type: Spontaneous
  Country: US (occurrence: None)
  Receive Date: 20140915
  Receipt Date: 20140915
  Transmission Date: 20150326
  Serious: Yes (Other)
  Sender: FDA-Public Use
  Company Number: 2014-US-003148

PATIENT
  Age: 42 Year
  Sex: Female
  Weight: 44 kg

DRUGS (5)
  1. CELEXA [Concomitant]
     Active Substance: CITALOPRAM HYDROBROMIDE
  2. HYDROCODONE (HYDROCODONE) [Concomitant]
     Active Substance: HYDROCODONE
  3. MIRAPEX [Concomitant]
     Active Substance: PRAMIPEXOLE DIHYDROCHLORIDE
  4. XYREM [Suspect]
     Active Substance: SODIUM OXYBATE
     Indication: NARCOLEPSY
     Route: 048
     Dates: start: 201110
  5. NUVGIL (ARMODAFINIL) [Concomitant]

REACTIONS (1)
  - Paranoia [None]

NARRATIVE: CASE EVENT DATE: 2012
